FAERS Safety Report 12701032 (Version 1)
Quarter: 2016Q3

REPORT INFORMATION
  Report Type: Spontaneous
  Country: US (occurrence: None)
  Receive Date: 20160830
  Receipt Date: 20160830
  Transmission Date: 20161109
  Serious: No
  Sender: FDA-Public Use
  Company Number: None

PATIENT
  Age: 63 Year
  Sex: Male
  Weight: 52.2 kg

DRUGS (1)
  1. AMIKACIN [Suspect]
     Active Substance: AMIKACIN
     Indication: INFECTION
     Dosage: OTHER
     Route: 042
     Dates: start: 20160805, end: 20160822

REACTIONS (1)
  - Ototoxicity [None]

NARRATIVE: CASE EVENT DATE: 20160825
